FAERS Safety Report 9228050 (Version 3)
Quarter: 2015Q2

REPORT INFORMATION
  Report Type: Report from Study
  Country: FR (occurrence: FR)
  Receive Date: 20130412
  Receipt Date: 20150522
  Transmission Date: 20150821
  Serious: Yes (Hospitalization)
  Sender: FDA-Public Use
  Company Number: FR-ROCHE-1194802

PATIENT
  Age: 83 Year
  Sex: Male
  Weight: 57 kg

DRUGS (10)
  1. BEVACIZUMAB [Suspect]
     Active Substance: BEVACIZUMAB
     Indication: COLORECTAL CANCER METASTATIC
     Route: 065
     Dates: start: 20121107, end: 20130102
  2. MOPRAL [Concomitant]
     Active Substance: OMEPRAZOLE SODIUM
     Route: 048
     Dates: start: 201211
  3. KARDEGIC [Concomitant]
     Active Substance: ASPIRIN LYSINE
     Dosage: START DATE: BEFORE SEP/2012
     Route: 048
  4. FORLAX [Concomitant]
     Active Substance: POLYETHYLENE GLYCOL 4000
     Indication: CONSTIPATION
     Route: 048
     Dates: start: 201211
  5. TARDYFERON (FRANCE) [Concomitant]
     Route: 048
     Dates: start: 201211
  6. ZOLPIDEM [Concomitant]
     Active Substance: ZOLPIDEM\ZOLPIDEM TARTRATE
     Dosage: START DATE: BEFORE SEP/2012
     Route: 048
  7. ZYLORIC [Concomitant]
     Active Substance: ALLOPURINOL
     Dosage: START DATE: BEFORE SEP/2012
     Route: 048
  8. LERCANIDIPINE [Concomitant]
     Active Substance: LERCANIDIPINE
     Route: 048
     Dates: start: 201211
  9. XATRAL [Concomitant]
     Active Substance: ALFUZOSIN
     Route: 048
     Dates: start: 201211
  10. EUPANTOL [Concomitant]
     Active Substance: PANTOPRAZOLE SODIUM
     Route: 048
     Dates: start: 201211

REACTIONS (3)
  - Fall [Unknown]
  - Bronchopneumopathy [Not Recovered/Not Resolved]
  - Cardiac failure [Not Recovered/Not Resolved]

NARRATIVE: CASE EVENT DATE: 201212
